FAERS Safety Report 15540488 (Version 1)
Quarter: 2018Q4

REPORT INFORMATION
  Report Type: Spontaneous
  Country: US (occurrence: US)
  Receive Date: 20181023
  Receipt Date: 20181023
  Transmission Date: 20190205
  Serious: No
  Sender: FDA-Public Use
  Company Number: US-APOTEX-2017AP022410

PATIENT
  Age: 79 Year
  Sex: Male

DRUGS (2)
  1. LEVAQUIN [Concomitant]
     Active Substance: LEVOFLOXACIN
     Indication: PNEUMONIA
     Dosage: 1 DF, QD
     Route: 065
  2. FLUTICASONE. [Suspect]
     Active Substance: FLUTICASONE
     Indication: RHINORRHOEA
     Dosage: UNK,
     Route: 045
     Dates: start: 20171130

REACTIONS (2)
  - No adverse event [Unknown]
  - Accidental exposure to product [Unknown]

NARRATIVE: CASE EVENT DATE: 20171130
